FAERS Safety Report 8943905 (Version 1)
Quarter: 2012Q4

REPORT INFORMATION
  Report Type: 
  Country: GB (occurrence: GB)
  Receive Date: 20121204
  Receipt Date: 20121204
  Transmission Date: 20130627
  Serious: Yes (Hospitalization)
  Sender: FDA-Public Use
  Company Number: GB-WATSON-2012-19439

PATIENT
  Age: 63 Year
  Sex: Male

DRUGS (2)
  1. DICLOFENAC (UNKNOWN) [Suspect]
     Indication: ANALGESIC THERAPY
     Dosage: 100 mg, unknown
     Route: 048
     Dates: start: 201205, end: 201205
  2. OMEPRAZOLE [Concomitant]
     Indication: PRODUCT USED FOR UNKNOWN INDICATION
     Dosage: UNK,
     Route: 065

REACTIONS (4)
  - Anaphylactoid reaction [Recovered/Resolved]
  - Circulatory collapse [Recovered/Resolved]
  - Gastrointestinal hypermotility [Recovered/Resolved]
  - Pruritus generalised [Recovered/Resolved]
